FAERS Safety Report 7811706-6 (Version None)
Quarter: 2011Q4

REPORT INFORMATION
  Report Type: 
  Country: None (occurrence: None)
  Receive Date: 20111013
  Receipt Date: 20111010
  Transmission Date: 20120403
  Serious: Yes (Other)
  Sender: FDA-Public Use
  Company Number: FR-AMGEN-FRASP2011049430

PATIENT
  Age: 65 Year
  Sex: Male
  Weight: 83 kg

DRUGS (16)
  1. RAMIPRIL [Concomitant]
     Indication: ISCHAEMIC CARDIOMYOPATHY
  2. AVODART [Concomitant]
     Dosage: UNK UNK, QD
  3. ARANESP [Suspect]
     Indication: ANAEMIA
     Dosage: 30 MUG, QWK
     Route: 058
     Dates: start: 20110922
  4. VIRAFERONPEG [Concomitant]
     Dosage: UNK UNK, QWK
  5. PLAVIX [Concomitant]
     Indication: ISCHAEMIC CARDIOMYOPATHY
  6. LOXAN [Concomitant]
  7. ALLOPURINOL [Concomitant]
     Indication: HYPERURICAEMIA
     Route: 048
  8. CYMBALTA [Concomitant]
  9. LASIX [Concomitant]
     Dosage: 40 MG, UNK
  10. LERCANIDIPINE [Concomitant]
  11. KEPPRA [Concomitant]
     Dosage: 1000 MG, UNK
  12. REBETOL [Concomitant]
     Indication: HEPATITIS C
     Route: 048
  13. RAMIPRIL [Concomitant]
     Indication: RENAL FAILURE
     Route: 048
  14. PLAVIX [Concomitant]
     Indication: PERIPHERAL ARTERIAL OCCLUSIVE DISEASE
     Route: 048
  15. NEXIUM [Concomitant]
  16. EZETIMIBE [Concomitant]

REACTIONS (3)
  - ANGIOEDEMA [None]
  - FACE OEDEMA [None]
  - LIP OEDEMA [None]
